FAERS Safety Report 14662099 (Version 1)
Quarter: 2018Q1

REPORT INFORMATION
  Report Type: Report from Study
  Country: DE (occurrence: DE)
  Receive Date: 20180321
  Receipt Date: 20180321
  Transmission Date: 20180509
  Serious: Yes (Hospitalization)
  Sender: FDA-Public Use
  Company Number: DE-CONCORDIA PHARMACEUTICALS INC.-E2B_00010584

PATIENT
  Age: 41 Year
  Sex: Female
  Weight: 68 kg

DRUGS (11)
  1. LYRICA [Concomitant]
     Active Substance: PREGABALIN
     Indication: NEURALGIA
     Route: 048
  2. CYCLOPHOSPHAMIDE. [Suspect]
     Active Substance: CYCLOPHOSPHAMIDE
     Indication: DIFFUSE LARGE B-CELL LYMPHOMA
     Dosage: ACCORDING TO CHOP REGIMEN
     Route: 042
     Dates: start: 20160408
  3. HYDROXYDAUNORUBICIN [Suspect]
     Active Substance: DOXORUBICIN
     Indication: DIFFUSE LARGE B-CELL LYMPHOMA
     Dosage: ACCORDING TO CHOP REGIMEN
     Route: 042
     Dates: start: 20160408
  4. ACICLOVIR [Concomitant]
     Active Substance: ACYCLOVIR
     Route: 042
     Dates: start: 20160921, end: 20160927
  5. MABTHERA [Suspect]
     Active Substance: RITUXIMAB
     Indication: DIFFUSE LARGE B-CELL LYMPHOMA
     Dosage: TOGETHER WITH CHOP
     Route: 042
     Dates: start: 20160407
  6. ALLOPURINOL. [Concomitant]
     Active Substance: ALLOPURINOL
     Route: 048
     Dates: start: 20160407
  7. PREDNISOLONE. [Suspect]
     Active Substance: PREDNISOLONE
     Indication: DIFFUSE LARGE B-CELL LYMPHOMA
     Dosage: ACCORDING TO CHOP REGIMEN
     Route: 042
     Dates: start: 20160407
  8. DIMETINDENE [Concomitant]
     Active Substance: DIMETHINDENE
     Dosage: DAILY DOSE: 4 MG MILLGRAM(S) EVERY 3 WEEKS
     Route: 042
     Dates: start: 20160407
  9. VINCRISTINE [Suspect]
     Active Substance: VINCRISTINE
     Indication: DIFFUSE LARGE B-CELL LYMPHOMA
     Dosage: ACCORDING TO CHOP REGIMEN
     Route: 042
     Dates: start: 20160407
  10. ACICLOVIR [Concomitant]
     Active Substance: ACYCLOVIR
     Indication: PROPHYLAXIS
     Route: 048
     Dates: start: 20160928, end: 20160929
  11. RITUXIMAB. [Suspect]
     Active Substance: RITUXIMAB
     Indication: DIFFUSE LARGE B-CELL LYMPHOMA
     Dosage: DAILY DOSE: 1400 MG MILLGRAM(S) EVERY 3 WEEKS
     Route: 058
     Dates: start: 20160428

REACTIONS (4)
  - Herpes zoster [Recovered/Resolved with Sequelae]
  - Dyspepsia [Recovered/Resolved]
  - Bicytopenia [Recovered/Resolved]
  - Neutropenia [Not Recovered/Not Resolved]

NARRATIVE: CASE EVENT DATE: 20160418
